FAERS Safety Report 9505614 (Version 1)
Quarter: 2013Q1

REPORT INFORMATION
  Report Type: Spontaneous
  Country: US (occurrence: None)
  Receive Date: 20130221
  Receipt Date: 20130221
  Transmission Date: 20140127
  Serious: Yes (Other)
  Sender: FDA-Public Use
  Company Number: 1206USA01520

PATIENT
  Age: 76 Year
  Sex: Female

DRUGS (2)
  1. PRINIVIL [Suspect]
     Indication: HYPERTENSION
     Route: 048
     Dates: end: 20090525
  2. MK-0805 [Suspect]
     Dates: end: 20090524

REACTIONS (3)
  - Blood urea increased [None]
  - Blood creatinine increased [None]
  - Hypotension [None]
